FAERS Safety Report 16617405 (Version 1)
Quarter: 2019Q3

REPORT INFORMATION
  Report Type: Spontaneous
  Country: US (occurrence: US)
  Receive Date: 20190610
  Receipt Date: 20190610
  Transmission Date: 20191004
  Serious: No
  Sender: FDA-Public Use
  Company Number: None

PATIENT

DRUGS (14)
  1. LETAIRIS [Suspect]
     Active Substance: AMBRISENTAN
     Indication: PULMONARY ARTERIAL HYPERTENSION
     Route: 048
     Dates: start: 201807
  2. COLCHICINE. [Concomitant]
     Active Substance: COLCHICINE
  3. ALBUTEROL. [Concomitant]
     Active Substance: ALBUTEROL
  4. POTASSIUM CHLORIDE. [Concomitant]
     Active Substance: POTASSIUM CHLORIDE
  5. ATOVAQUONE. [Concomitant]
     Active Substance: ATOVAQUONE
  6. FUROSEMIDE. [Concomitant]
     Active Substance: FUROSEMIDE
  7. NABUMETONE. [Suspect]
     Active Substance: NABUMETONE
  8. CELLCEPT [Concomitant]
     Active Substance: MYCOPHENOLATE MOFETIL\MYCOPHENOLATE MOFETIL HYDROCHLORIDE
  9. SILDENAFIL. [Concomitant]
     Active Substance: SILDENAFIL
  10. PREDNISONE. [Concomitant]
     Active Substance: PREDNISONE
  11. CLOTRIMAZOLE. [Concomitant]
     Active Substance: CLOTRIMAZOLE
  12. ALLOPURINOL. [Concomitant]
     Active Substance: ALLOPURINOL
  13. REFRESH OPHT DROP [Concomitant]
  14. MAGNESIUM OXIDE. [Concomitant]
     Active Substance: MAGNESIUM OXIDE

REACTIONS (2)
  - Back pain [None]
  - Arthralgia [None]

NARRATIVE: CASE EVENT DATE: 20190601
